FAERS Safety Report 12643547 (Version 1)
Quarter: 2016Q3

REPORT INFORMATION
  Report Type: Spontaneous
  Country: US (occurrence: US)
  Receive Date: 20160811
  Receipt Date: 20160811
  Transmission Date: 20161109
  Serious: No
  Sender: FDA-Public Use
  Company Number: US-BEH-2016072347

PATIENT
  Sex: Female
  Weight: 140 kg

DRUGS (26)
  1. KEFLEX [Concomitant]
     Active Substance: CEPHALEXIN
  2. SPIRIVA [Concomitant]
     Active Substance: TIOTROPIUM BROMIDE MONOHYDRATE
  3. SYMBICORT [Concomitant]
     Active Substance: BUDESONIDE\FORMOTEROL FUMARATE DIHYDRATE
  4. DIPHENHYDRAMINE. [Concomitant]
     Active Substance: DIPHENHYDRAMINE
  5. COUMADIN [Concomitant]
     Active Substance: WARFARIN SODIUM
  6. SODIUM CHLORIDE. [Concomitant]
     Active Substance: SODIUM CHLORIDE
  7. LMX                                /00033401/ [Concomitant]
  8. PREDNISONE. [Concomitant]
     Active Substance: PREDNISONE
  9. METOPROLOL. [Concomitant]
     Active Substance: METOPROLOL
  10. TYLENOL ARTHRITIS PAIN [Concomitant]
     Active Substance: ACETAMINOPHEN
  11. EPIPEN [Concomitant]
     Active Substance: EPINEPHRINE
  12. METFORMIN [Concomitant]
     Active Substance: METFORMIN HYDROCHLORIDE
  13. BUDESONIDE. [Concomitant]
     Active Substance: BUDESONIDE
  14. TUDORZA PRESSAIR [Concomitant]
     Active Substance: ACLIDINIUM BROMIDE
  15. PROAIR HFA [Concomitant]
     Active Substance: ALBUTEROL SULFATE
  16. COMBIVENT [Concomitant]
     Active Substance: ALBUTEROL SULFATE\IPRATROPIUM BROMIDE
  17. BROVANA [Concomitant]
     Active Substance: ARFORMOTEROL TARTRATE
  18. MUCINEX [Concomitant]
     Active Substance: GUAIFENESIN
  19. CARDIZEM [Concomitant]
     Active Substance: DILTIAZEM HYDROCHLORIDE
  20. POTASSIUM CL [Concomitant]
     Active Substance: POTASSIUM CHLORIDE
  21. TRAMADOL. [Concomitant]
     Active Substance: TRAMADOL
  22. PRAVASTATIN. [Concomitant]
     Active Substance: PRAVASTATIN
  23. DIGOXIN. [Concomitant]
     Active Substance: DIGOXIN
  24. ZEMAIRA [Suspect]
     Active Substance: .ALPHA.1-PROTEINASE INHIBITOR HUMAN
     Indication: ALPHA-1 ANTI-TRYPSIN DEFICIENCY
     Dosage: 60 MG/KG, QW
     Route: 042
     Dates: start: 20090302
  25. LASIX [Concomitant]
     Active Substance: FUROSEMIDE
  26. PHENAZOPYRIDINE. [Concomitant]
     Active Substance: PHENAZOPYRIDINE

REACTIONS (1)
  - Urinary tract infection [Unknown]
